FAERS Safety Report 24170315 (Version 1)
Quarter: 2024Q3

REPORT INFORMATION
  Report Type: Spontaneous
  Country: IN (occurrence: IN)
  Receive Date: 20240803
  Receipt Date: 20240803
  Transmission Date: 20241017
  Serious: Yes (Hospitalization, Other)
  Sender: CADILA
  Company Number: IN-CPL-004478

PATIENT
  Age: 61 Year
  Sex: Male

DRUGS (1)
  1. METRONIDAZOLE [Suspect]
     Active Substance: METRONIDAZOLE
     Indication: Liver abscess
     Dosage: 800 MG THRICE A DAY

REACTIONS (1)
  - Neurotoxicity [Recovering/Resolving]
